FAERS Safety Report 5192866-5 (Version None)
Quarter: 2006Q4

REPORT INFORMATION
  Report Type: 
  Country: None (occurrence: None)
  Receive Date: 20061228
  Receipt Date: 20060118
  Transmission Date: 20070319
  Serious: No
  Sender: FDA-Public Use
  Company Number: US-GLAXOSMITHKLINE-A0589878A

PATIENT
  Age: 90 Year
  Sex: Male

DRUGS (10)
  1. FLONASE [Suspect]
     Indication: SINUS CONGESTION
     Dosage: 2SPR TWICE PER DAY
     Route: 045
     Dates: start: 20051215, end: 20051218
  2. SOTALOL HYDROCHLORIDE [Concomitant]
     Dosage: 180MG PER DAY
     Route: 048
  3. DIOVAN [Concomitant]
     Dosage: 160MG PER DAY
     Route: 048
  4. FUROSEMIDE [Concomitant]
     Dosage: 40MG PER DAY
     Route: 048
     Dates: start: 20060130
  5. PRAVACHOL [Concomitant]
     Dosage: 5MG PER DAY
     Route: 048
  6. DOXAZOSIN MESYLATE [Concomitant]
     Dosage: 8MG AT NIGHT
     Route: 048
     Dates: start: 20060130
  7. ASPIRIN [Concomitant]
     Dosage: 81MG PER DAY
     Route: 048
     Dates: start: 20040714
  8. FOLIC ACID [Concomitant]
     Route: 048
  9. VITAMIN B6 [Concomitant]
     Dosage: 100MG PER DAY
     Route: 048
  10. POTASSIUM CHLORIDE [Concomitant]
     Dosage: 10MEQ PER DAY
     Route: 048
     Dates: start: 20060130

REACTIONS (7)
  - BLOOD CREATININE INCREASED [None]
  - DRUG HYPERSENSITIVITY [None]
  - EAR PAIN [None]
  - FACE OEDEMA [None]
  - FACIAL PAIN [None]
  - PAIN [None]
  - SWELLING FACE [None]
